FAERS Safety Report 6315730-4 (Version None)
Quarter: 2009Q3

REPORT INFORMATION
  Report Type: 
  Country: None (occurrence: None)
  Receive Date: 20090819
  Receipt Date: 20080701
  Transmission Date: 20100115
  Serious: No
  Sender: FDA-Public Use
  Company Number: US-BAUSCH-2008BL002908

PATIENT
  Age: 81 Year
  Sex: Male

DRUGS (6)
  1. CROMOLYN SODIUM [Suspect]
     Indication: SEASONAL ALLERGY
     Route: 045
     Dates: start: 20080630
  2. PAROXETINE HCL [Suspect]
     Indication: DEPRESSION
     Route: 048
  3. PSEUDOEPHEDRINE HCL [Concomitant]
     Indication: HYPERSENSITIVITY
     Route: 048
  4. ALLERGY [Concomitant]
     Indication: HYPERSENSITIVITY
     Route: 048
  5. SIMVASTATIN [Concomitant]
     Indication: BLOOD CHOLESTEROL INCREASED
     Route: 048
  6. ASPIRIN [Concomitant]
     Indication: PROPHYLAXIS
     Route: 048

REACTIONS (7)
  - DIZZINESS [None]
  - DRUG HYPERSENSITIVITY [None]
  - DRUG INTERACTION [None]
  - HEADACHE [None]
  - NASAL CONGESTION [None]
  - NASAL DISCOMFORT [None]
  - NERVOUSNESS [None]
